FAERS Safety Report 9552036 (Version 1)
Quarter: 2013Q3

REPORT INFORMATION
  Report Type: Spontaneous
  Country: US (occurrence: None)
  Receive Date: 20130923
  Receipt Date: 20130923
  Transmission Date: 20140515
  Serious: Yes (Hospitalization)
  Sender: FDA-Public Use
  Company Number: None

PATIENT
  Age: 56 Year
  Sex: Male
  Weight: 107.73 kg

DRUGS (14)
  1. 5-FLUOROURACIL (5-FU) [Suspect]
  2. BEVACIZUMAB [Suspect]
  3. LEUCOVORIN CALCIUM [Suspect]
  4. OXALIPLATIN (ELOXATIN) [Suspect]
  5. ASPIRIN [Concomitant]
  6. ATIVAN [Concomitant]
  7. TOPROL XL [Concomitant]
  8. DEXAMETHASONE [Concomitant]
  9. DOXYCYCLINE MONOHYDRATE [Concomitant]
  10. DULCOLAX [Concomitant]
  11. NORCO [Concomitant]
  12. PHENEGRAN GEL [Concomitant]
  13. PROMETHAZINE [Concomitant]
  14. ZOFRAN [Concomitant]

REACTIONS (6)
  - Flushing [None]
  - Epistaxis [None]
  - Vision blurred [None]
  - Proteinuria [None]
  - Blood pressure increased [None]
  - Dysgeusia [None]
